FAERS Safety Report 20206020 (Version 4)
Quarter: 2022Q1

REPORT INFORMATION
  Report Type: Other
  Country: GB (occurrence: GB)
  Receive Date: 20211220
  Receipt Date: 20220210
  Transmission Date: 20220423
  Serious: Yes (Life-Threatening, Hospitalization, Other)
  Sender: FDA-Public Use
  Company Number: GB-MACLEODS PHARMA UK LTD-MAC2021033087

PATIENT

DRUGS (5)
  1. ARIPIPRAZOLE [Suspect]
     Active Substance: ARIPIPRAZOLE
     Indication: Depression
     Dosage: UNK
     Route: 048
     Dates: start: 20191101, end: 20191231
  2. ARIPIPRAZOLE [Suspect]
     Active Substance: ARIPIPRAZOLE
     Dosage: UNK
     Route: 048
     Dates: start: 20191101, end: 20201231
  3. MIRTAZAPINE [Concomitant]
     Active Substance: MIRTAZAPINE
     Indication: Depression
     Dosage: UNK
     Route: 065
  4. VORTIOXETINE [Concomitant]
     Active Substance: VORTIOXETINE
     Indication: Depression
     Dosage: UNK
     Route: 065
  5. VORTIOXETINE [Concomitant]
     Active Substance: VORTIOXETINE
     Dosage: UNK
     Route: 065

REACTIONS (2)
  - Akathisia [Recovered/Resolved]
  - Off label use [Unknown]

NARRATIVE: CASE EVENT DATE: 20191101
